FAERS Safety Report 4618697-X (Version None)
Quarter: 2005Q1

REPORT INFORMATION
  Report Type: 
  Country: None (occurrence: None)
  Receive Date: 20050324
  Receipt Date: 20050307
  Transmission Date: 20050727
  Serious: Yes (Hospitalization, Other)
  Sender: FDA-Public Use
  Company Number: USA050289631

PATIENT
  Age: 76 Year
  Sex: Female

DRUGS (1)
  1. FORTEO [Suspect]
     Indication: MINERAL SUPPLEMENTATION
     Dosage: 20 UG
     Dates: start: 20041001

REACTIONS (3)
  - ARTERIAL OCCLUSIVE DISEASE [None]
  - CHEST PAIN [None]
  - PHARMACEUTICAL PRODUCT COMPLAINT [None]
